FAERS Safety Report 5809769-2 (Version None)
Quarter: 2008Q3

REPORT INFORMATION
  Report Type: 
  Country: None (occurrence: None)
  Receive Date: 20080715
  Receipt Date: 20080707
  Transmission Date: 20090109
  Serious: Yes (Hospitalization, Other)
  Sender: FDA-Public Use
  Company Number: HQWYE089106AUG04

PATIENT
  Sex: Female

DRUGS (5)
  1. PREMPRO [Suspect]
     Indication: HORMONE REPLACEMENT THERAPY
  2. ESTRADIOL [Suspect]
  3. ESTRACE [Suspect]
  4. CONJUGATED ESTROGENS [Suspect]
  5. MEDROXYPROGESTERONE [Suspect]

REACTIONS (1)
  - BREAST CANCER METASTATIC [None]
